FAERS Safety Report 17279353 (Version 4)
Quarter: 2020Q1

REPORT INFORMATION
  Report Type: Spontaneous
  Country: US (occurrence: US)
  Receive Date: 20200116
  Receipt Date: 20200324
  Transmission Date: 20200409
  Serious: No
  Sender: FDA-Public Use
  Company Number: US-009507513-2001USA005439

PATIENT
  Age: 20 Year
  Sex: Female
  Weight: 74.83 kg

DRUGS (1)
  1. NEXPLANON [Suspect]
     Active Substance: ETONOGESTREL
     Dosage: 1 IMPLANT EVERY 3 YEAR, IN LEFT UPPER ARM
     Route: 059
     Dates: start: 20191112, end: 20200109

REACTIONS (4)
  - Implant site swelling [Unknown]
  - Implant site pain [Unknown]
  - Device expulsion [Recovered/Resolved]
  - Implant site inflammation [Unknown]

NARRATIVE: CASE EVENT DATE: 201912
